FAERS Safety Report 17613896 (Version 3)
Quarter: 2020Q2

REPORT INFORMATION
  Report Type: Spontaneous
  Country: US (occurrence: US)
  Receive Date: 20200402
  Receipt Date: 20200513
  Transmission Date: 20200713
  Serious: Yes (Hospitalization)
  Sender: FDA-Public Use
  Company Number: US-GW PHARMA-202003USGW00992

PATIENT

DRUGS (7)
  1. EPIDIOLEX [Suspect]
     Active Substance: CANNABIDIOL
     Indication: SEVERE MYOCLONIC EPILEPSY OF INFANCY
     Dosage: 15.8 MILLIGRAM/KILOGRAM, QD
     Route: 048
     Dates: start: 20191015, end: 20200206
  2. DIVALPROEX SODIUM. [Suspect]
     Active Substance: DIVALPROEX SODIUM
     Dosage: 34 MG/KG/DAY, 612 MILLIGRAM, QD
     Route: 065
     Dates: start: 20200305
  3. TOPIRAMATE. [Concomitant]
     Active Substance: TOPIRAMATE
     Indication: EPILEPSY
     Dosage: 75 MILLIGRAM, QD (25 MG PM AND 50MG AM) BEFORE 2020
     Route: 065
  4. EPIDIOLEX [Interacting]
     Active Substance: CANNABIDIOL
     Indication: EPILEPSY
     Dosage: 13 MILLIGRAM/KILOGRAM, QD
     Route: 048
     Dates: start: 20200309, end: 20200419
  5. DIVALPROEX SODIUM. [Suspect]
     Active Substance: DIVALPROEX SODIUM
     Dosage: 41 MG/KG/DAY, 738 MILLIGRAM, QD
     Route: 065
     Dates: start: 20200204, end: 202003
  6. CHILDREN MULTIVITAMINS [Concomitant]
     Indication: VITAMIN SUPPLEMENTATION
     Dosage: 1 DOSAGE FORM, QD
     Route: 065
  7. DIVALPROEX SODIUM. [Suspect]
     Active Substance: DIVALPROEX SODIUM
     Indication: EPILEPSY
     Dosage: 250 MILLIGRAM, TID
     Route: 065
     Dates: start: 20150619

REACTIONS (11)
  - Aspartate aminotransferase increased [Recovered/Resolved]
  - Pyrexia [Recovered/Resolved]
  - Drug ineffective [Unknown]
  - Alanine aminotransferase increased [Recovered/Resolved]
  - Lethargy [Recovered/Resolved]
  - Nausea [Recovered/Resolved]
  - Abdominal pain [Recovered/Resolved]
  - Diarrhoea [Recovered/Resolved]
  - Hyperammonaemia [Recovered/Resolved]
  - Toxicity to various agents [Recovered/Resolved]
  - Vomiting [Recovered/Resolved]

NARRATIVE: CASE EVENT DATE: 20191218
